FAERS Safety Report 14641728 (Version 6)
Quarter: 2018Q4

REPORT INFORMATION
  Report Type: Spontaneous
  Country: US (occurrence: US)
  Receive Date: 20180315
  Receipt Date: 20181113
  Transmission Date: 20190204
  Serious: Yes (Hospitalization, Other)
  Sender: FDA-Public Use
  Company Number: US-JNJFOC-20180318702

PATIENT
  Age: 68 Year
  Sex: Male
  Weight: 118 kg

DRUGS (42)
  1. IMBRUVICA [Suspect]
     Active Substance: IBRUTINIB
     Indication: CHRONIC LYMPHOCYTIC LEUKAEMIA
     Route: 048
     Dates: start: 20180114
  2. CELEBREX [Concomitant]
     Active Substance: CELECOXIB
  3. CARDURA [Concomitant]
     Active Substance: DOXAZOSIN MESYLATE
     Dosage: 8 MG, QD
     Route: 048
  4. LISINOPRIL. [Concomitant]
     Active Substance: LISINOPRIL
  5. VITAMIN B3 [Concomitant]
     Active Substance: NIACIN
     Dosage: 500 MG, QD
     Route: 048
  6. VITAMIN D3 [Concomitant]
     Active Substance: CHOLECALCIFEROL
  7. CARMELLOSE [Concomitant]
     Indication: DRY EYE
     Dosage: 1.4-0.6 % EYE SOLUTION, TWO TIMES DAILY AS NEEDED
  8. BACTRIM [Concomitant]
     Active Substance: SULFAMETHOXAZOLE\TRIMETHOPRIM
     Dosage: 400-80 MG, TAKE 1 TABLET BY MOUTH EVERY DAY FOR 30 DOSES
     Route: 048
  9. ZYLOPRIM [Concomitant]
     Active Substance: ALLOPURINOL
     Dosage: 300 MG, QD
     Route: 048
  10. ZOLOFT [Concomitant]
     Active Substance: SERTRALINE HYDROCHLORIDE
     Dosage: 50 MG, QID
     Route: 048
  11. FOLIC ACID. [Concomitant]
     Active Substance: FOLIC ACID
     Route: 048
     Dates: start: 20180114
  12. IMBRUVICA [Suspect]
     Active Substance: IBRUTINIB
     Indication: CHRONIC LYMPHOCYTIC LEUKAEMIA
     Route: 048
     Dates: start: 20161215
  13. ALLEGRA [Concomitant]
     Active Substance: FEXOFENADINE HYDROCHLORIDE
     Dosage: 180 MG, PRN
     Route: 048
  14. COQ10 [Concomitant]
     Active Substance: UBIDECARENONE
  15. NASONEX [Concomitant]
     Active Substance: MOMETASONE FUROATE
     Dosage: INSTILL 1 SPRAY INTO EACH NOSTRIL EVERY DAY
     Route: 045
  16. ZOCOR [Concomitant]
     Active Substance: SIMVASTATIN
     Dosage: 40 MG,QD
     Route: 048
  17. ACETAMINOPHEN AND CODEINE [Concomitant]
     Active Substance: ACETAMINOPHEN\CODEINE PHOSPHATE
     Dosage: 1-2 TABLET, EVERY 6 HRS, PRN
     Route: 048
  18. IMBRUVICA [Suspect]
     Active Substance: IBRUTINIB
     Indication: CHRONIC LYMPHOCYTIC LEUKAEMIA
     Route: 048
     Dates: start: 201801
  19. DILAUDID [Suspect]
     Active Substance: HYDROMORPHONE HYDROCHLORIDE
     Indication: PRODUCT USED FOR UNKNOWN INDICATION
  20. BENADRYL [Suspect]
     Active Substance: DIPHENHYDRAMINE HYDROCHLORIDE
     Indication: PRODUCT USED FOR UNKNOWN INDICATION
     Route: 065
  21. VALIUM [Suspect]
     Active Substance: DIAZEPAM
     Indication: PRODUCT USED FOR UNKNOWN INDICATION
     Dosage: TAKE 1 TABLET BY MOUTH AS NEEDED (MRI SCAN) ONE HOUR PRIOR TO SCAN. MAY REPEAT IN
     Route: 048
  22. ASPIRIN. [Concomitant]
     Active Substance: ASPIRIN
     Dosage: 81 MG, QD
     Route: 048
  23. MULTIVITAMINS [Concomitant]
     Active Substance: VITAMINS
     Route: 048
  24. AZELASTINE HYDROCHLORIDE. [Concomitant]
     Active Substance: AZELASTINE HYDROCHLORIDE
     Dosage: INSTILL 2 SPRAYS INTO EACH NOSTRIL TWICE DAILY
  25. PLAVIX [Concomitant]
     Active Substance: CLOPIDOGREL BISULFATE
     Dosage: 75 MG, QD
     Route: 048
  26. DULERA [Concomitant]
     Active Substance: FORMOTEROL FUMARATE DIHYDRATE\MOMETASONE FUROATE
  27. ALBUTEROL. [Concomitant]
     Active Substance: ALBUTEROL
     Dosage: 2 PUFF, EVERY 4 HRS, PRN
  28. VITAMIN D [Concomitant]
     Active Substance: CHOLECALCIFEROL
     Dosage: TAKE 3 TABLETS (1,200 UNITS TOTAL) BY MOUTH EVERY DAY
     Route: 048
  29. LASIX [Concomitant]
     Active Substance: FUROSEMIDE
     Indication: FLUID RETENTION
     Dosage: 20 MG, QOD
     Route: 048
  30. NEURONTIN [Concomitant]
     Active Substance: GABAPENTIN
     Dosage: 300 MG, QID
     Route: 048
  31. IMBRUVICA [Suspect]
     Active Substance: IBRUTINIB
     Indication: CHRONIC LYMPHOCYTIC LEUKAEMIA
     Route: 048
     Dates: start: 20171125
  32. VITAMIN C [Concomitant]
     Active Substance: ASCORBIC ACID
     Dosage: 500 MG, QD
     Route: 048
  33. DIVALPROEX [Concomitant]
     Active Substance: DIVALPROEX SODIUM
     Dosage: TAKE 3 TABLETS (750 MG TOTAL) BY MOUTH TWICE DAILY
     Route: 048
  34. IMBRUVICA [Suspect]
     Active Substance: IBRUTINIB
     Indication: CHRONIC LYMPHOCYTIC LEUKAEMIA
     Route: 048
     Dates: start: 20161223, end: 20170703
  35. FISH OIL [Concomitant]
     Active Substance: FISH OIL
  36. TENORMIN [Concomitant]
     Active Substance: ATENOLOL
     Dosage: 50 MG, QD
     Route: 048
  37. OMEGA-3 FATTY ACIDS [Concomitant]
     Active Substance: OMEGA-3 FATTY ACIDS
     Dosage: 1000 MG, QD
     Route: 048
  38. CALCIUM CARBONATE. [Concomitant]
     Active Substance: CALCIUM CARBONATE
     Dosage: 500 MG, BID
     Route: 048
  39. IMBRUVICA [Suspect]
     Active Substance: IBRUTINIB
     Indication: CHRONIC LYMPHOCYTIC LEUKAEMIA
     Route: 048
     Dates: start: 20160825, end: 201711
  40. RITUXIMAB. [Suspect]
     Active Substance: RITUXIMAB
     Indication: PRODUCT USED FOR UNKNOWN INDICATION
     Route: 065
  41. ZINC. [Concomitant]
     Active Substance: ZINC
     Dosage: 50 MG, QD
     Route: 048
  42. COLLAGENASE SANTYL [Concomitant]
     Active Substance: COLLAGENASE CLOSTRIDIUM HISTOLYTICUM
     Dosage: 250 UNIT/G
     Route: 048

REACTIONS (29)
  - Cerebral ischaemia [Unknown]
  - Pulmonary oedema [Unknown]
  - Dysuria [Unknown]
  - Pneumonia [Recovered/Resolved]
  - Liver function test increased [Recovered/Resolved]
  - Cryoglobulinaemia [Unknown]
  - Head injury [Unknown]
  - Dysphemia [Unknown]
  - Ulcer [Recovering/Resolving]
  - Haemolytic anaemia [Recovered/Resolved]
  - Anaemia [Recovered/Resolved]
  - Hypertension [Not Recovered/Not Resolved]
  - Hypocalcaemia [Unknown]
  - Hyperkalaemia [Unknown]
  - Somnolence [Unknown]
  - Seizure [Unknown]
  - Dry gangrene [Recovered/Resolved]
  - Fall [Not Recovered/Not Resolved]
  - Gastrointestinal vascular malformation haemorrhagic [Unknown]
  - Impaired healing [Unknown]
  - Cardiomegaly [Unknown]
  - Oedema peripheral [Recovering/Resolving]
  - Dehydration [Unknown]
  - Pain in extremity [Unknown]
  - Gastric ulcer [Recovered/Resolved]
  - Erosive oesophagitis [Unknown]
  - Pleural effusion [Unknown]
  - Rotator cuff syndrome [Recovered/Resolved]
  - Hypotension [Unknown]

NARRATIVE: CASE EVENT DATE: 20171121
